FAERS Safety Report 8871347 (Version 1)
Quarter: 2012Q4

REPORT INFORMATION
  Report Type: 
  Country: US (occurrence: US)
  Receive Date: 20121029
  Receipt Date: 20121029
  Transmission Date: 20130627
  Serious: No
  Sender: FDA-Public Use
  Company Number: US-MYLANLABS-2012S1019904

PATIENT
  Age: 8 Year
  Sex: Male
  Weight: 22.68 kg

DRUGS (1)
  1. CLONIDINE [Suspect]
     Indication: ANXIETY
     Dosage: Changes weekly
     Route: 062
     Dates: start: 201208, end: 201209

REACTIONS (1)
  - Application site burn [Recovered/Resolved]
